FAERS Safety Report 18239921 (Version 1)
Quarter: 2020Q3

REPORT INFORMATION
  Report Type: Spontaneous
  Country: CA (occurrence: CA)
  Receive Date: 20200908
  Receipt Date: 20200908
  Transmission Date: 20201103
  Serious: Yes (Death)
  Sender: FDA-Public Use
  Company Number: CA-BEH-2020122054

PATIENT

DRUGS (1)
  1. HIZENTRA [Suspect]
     Active Substance: HUMAN IMMUNOGLOBULIN G
     Indication: PRODUCT USED FOR UNKNOWN INDICATION
     Dosage: 10 GRAM, QW
     Route: 065
     Dates: start: 20191217, end: 20200227

REACTIONS (2)
  - Foetal renal impairment [Fatal]
  - Foetal exposure timing unspecified [Fatal]

NARRATIVE: CASE EVENT DATE: 2020
